FAERS Safety Report 8617500-0 (Version None)
Quarter: 2012Q3

REPORT INFORMATION
  Report Type: 
  Country: None (occurrence: None)
  Receive Date: 20120824
  Receipt Date: 20111201
  Transmission Date: 20120928
  Serious: No
  Sender: FDA-Public Use
  Company Number: US-ASTRAZENECA-2011SE66027

PATIENT
  Age: 82 Year
  Sex: Female

DRUGS (1)
  1. SYMBICORT [Suspect]
     Route: 055

REACTIONS (5)
  - SINUSITIS [None]
  - NASOPHARYNGITIS [None]
  - VIRAL UPPER RESPIRATORY TRACT INFECTION [None]
  - BRONCHITIS [None]
  - HEARING IMPAIRED [None]
